FAERS Safety Report 21951745 (Version 1)
Quarter: 2023Q1

REPORT INFORMATION
  Report Type: Report from Study
  Country: DE (occurrence: DE)
  Receive Date: 20230203
  Receipt Date: 20230203
  Transmission Date: 20230418
  Serious: Yes (Other)
  Sender: FDA-Public Use
  Company Number: DE-TAKEDA-2022TUS101247

PATIENT
  Age: 43 Year
  Sex: Female
  Weight: 119 kg

DRUGS (70)
  1. PARATHYROID HORMONE [Suspect]
     Active Substance: PARATHYROID HORMONE
     Indication: Hypoparathyroidism
     Dosage: 50 MICROGRAM, QD
     Route: 065
     Dates: start: 20180823, end: 20181219
  2. PARATHYROID HORMONE [Suspect]
     Active Substance: PARATHYROID HORMONE
     Indication: Hypoparathyroidism
     Dosage: 50 MICROGRAM, QD
     Route: 065
     Dates: start: 20180823, end: 20181219
  3. PARATHYROID HORMONE [Suspect]
     Active Substance: PARATHYROID HORMONE
     Indication: Hypoparathyroidism
     Dosage: 50 MICROGRAM, QD
     Route: 065
     Dates: start: 20180823, end: 20181219
  4. PARATHYROID HORMONE [Suspect]
     Active Substance: PARATHYROID HORMONE
     Dosage: 75 MICROGRAM, QD
     Route: 065
     Dates: start: 20181220, end: 20190116
  5. PARATHYROID HORMONE [Suspect]
     Active Substance: PARATHYROID HORMONE
     Dosage: 75 MICROGRAM, QD
     Route: 065
     Dates: start: 20181220, end: 20190116
  6. PARATHYROID HORMONE [Suspect]
     Active Substance: PARATHYROID HORMONE
     Dosage: 75 MICROGRAM, QD
     Route: 065
     Dates: start: 20181220, end: 20190116
  7. PARATHYROID HORMONE [Suspect]
     Active Substance: PARATHYROID HORMONE
     Dosage: 100 MICROGRAM, QD
     Route: 065
     Dates: start: 20190117, end: 20190117
  8. PARATHYROID HORMONE [Suspect]
     Active Substance: PARATHYROID HORMONE
     Dosage: 100 MICROGRAM, QD
     Route: 065
     Dates: start: 20190117, end: 20190117
  9. PARATHYROID HORMONE [Suspect]
     Active Substance: PARATHYROID HORMONE
     Dosage: 100 MICROGRAM, QD
     Route: 065
     Dates: start: 20190117, end: 20190117
  10. PARATHYROID HORMONE [Suspect]
     Active Substance: PARATHYROID HORMONE
     Dosage: 100 MICROGRAM, QD
     Route: 065
     Dates: start: 20190118, end: 20190130
  11. PARATHYROID HORMONE [Suspect]
     Active Substance: PARATHYROID HORMONE
     Dosage: 100 MICROGRAM, QD
     Route: 065
     Dates: start: 20190118, end: 20190130
  12. PARATHYROID HORMONE [Suspect]
     Active Substance: PARATHYROID HORMONE
     Dosage: 100 MICROGRAM, QD
     Route: 065
     Dates: start: 20190118, end: 20190130
  13. PARATHYROID HORMONE [Suspect]
     Active Substance: PARATHYROID HORMONE
     Dosage: 75 MICROGRAM, QD
     Route: 065
     Dates: start: 20190131, end: 20190313
  14. PARATHYROID HORMONE [Suspect]
     Active Substance: PARATHYROID HORMONE
     Dosage: 75 MICROGRAM, QD
     Route: 065
     Dates: start: 20190131, end: 20190313
  15. PARATHYROID HORMONE [Suspect]
     Active Substance: PARATHYROID HORMONE
     Dosage: 75 MICROGRAM, QD
     Route: 065
     Dates: start: 20190131, end: 20190313
  16. PARATHYROID HORMONE [Suspect]
     Active Substance: PARATHYROID HORMONE
     Dosage: 100 MICROGRAM, QD
     Route: 065
     Dates: start: 20190314, end: 20190401
  17. PARATHYROID HORMONE [Suspect]
     Active Substance: PARATHYROID HORMONE
     Dosage: 100 MICROGRAM, QD
     Route: 065
     Dates: start: 20190314, end: 20190401
  18. PARATHYROID HORMONE [Suspect]
     Active Substance: PARATHYROID HORMONE
     Dosage: 100 MICROGRAM, QD
     Route: 065
     Dates: start: 20190314, end: 20190401
  19. PARATHYROID HORMONE [Suspect]
     Active Substance: PARATHYROID HORMONE
     Dosage: 62 MICROGRAM, QD
     Route: 065
     Dates: start: 20190402, end: 20190406
  20. PARATHYROID HORMONE [Suspect]
     Active Substance: PARATHYROID HORMONE
     Dosage: 62 MICROGRAM, QD
     Route: 065
     Dates: start: 20190402, end: 20190406
  21. PARATHYROID HORMONE [Suspect]
     Active Substance: PARATHYROID HORMONE
     Dosage: 62 MICROGRAM, QD
     Route: 065
     Dates: start: 20190402, end: 20190406
  22. PARATHYROID HORMONE [Suspect]
     Active Substance: PARATHYROID HORMONE
     Dosage: 75 MICROGRAM, QD
     Route: 065
     Dates: start: 20190407, end: 20190411
  23. PARATHYROID HORMONE [Suspect]
     Active Substance: PARATHYROID HORMONE
     Dosage: 75 MICROGRAM, QD
     Route: 065
     Dates: start: 20190407, end: 20190411
  24. PARATHYROID HORMONE [Suspect]
     Active Substance: PARATHYROID HORMONE
     Dosage: 75 MICROGRAM, QD
     Route: 065
     Dates: start: 20190407, end: 20190411
  25. PARATHYROID HORMONE [Suspect]
     Active Substance: PARATHYROID HORMONE
     Dosage: 75 MICROGRAM, QD
     Route: 065
     Dates: start: 20190412, end: 20190430
  26. PARATHYROID HORMONE [Suspect]
     Active Substance: PARATHYROID HORMONE
     Dosage: 75 MICROGRAM, QD
     Route: 065
     Dates: start: 20190412, end: 20190430
  27. PARATHYROID HORMONE [Suspect]
     Active Substance: PARATHYROID HORMONE
     Dosage: 75 MICROGRAM, QD
     Route: 065
     Dates: start: 20190412, end: 20190430
  28. PARATHYROID HORMONE [Suspect]
     Active Substance: PARATHYROID HORMONE
     Dosage: 77.7 MICROGRAM, QD
     Route: 065
     Dates: start: 20190501, end: 20190930
  29. PARATHYROID HORMONE [Suspect]
     Active Substance: PARATHYROID HORMONE
     Dosage: 77.7 MICROGRAM, QD
     Route: 065
     Dates: start: 20190501, end: 20190930
  30. PARATHYROID HORMONE [Suspect]
     Active Substance: PARATHYROID HORMONE
     Dosage: 77.7 MICROGRAM, QD
     Route: 065
     Dates: start: 20190501, end: 20190930
  31. PARATHYROID HORMONE [Suspect]
     Active Substance: PARATHYROID HORMONE
     Dosage: 100 MICROGRAM, QD
     Route: 065
     Dates: start: 20191001, end: 20200309
  32. PARATHYROID HORMONE [Suspect]
     Active Substance: PARATHYROID HORMONE
     Dosage: 100 MICROGRAM, QD
     Route: 065
     Dates: start: 20191001, end: 20200309
  33. PARATHYROID HORMONE [Suspect]
     Active Substance: PARATHYROID HORMONE
     Dosage: 100 MICROGRAM, QD
     Route: 065
     Dates: start: 20191001, end: 20200309
  34. PARATHYROID HORMONE [Suspect]
     Active Substance: PARATHYROID HORMONE
     Dosage: 107 MICROGRAM, QD
     Route: 065
     Dates: start: 20200310, end: 20200323
  35. PARATHYROID HORMONE [Suspect]
     Active Substance: PARATHYROID HORMONE
     Dosage: 107 MICROGRAM, QD
     Route: 065
     Dates: start: 20200310, end: 20200323
  36. PARATHYROID HORMONE [Suspect]
     Active Substance: PARATHYROID HORMONE
     Dosage: 107 MICROGRAM, QD
     Route: 065
     Dates: start: 20200310, end: 20200323
  37. PARATHYROID HORMONE [Suspect]
     Active Substance: PARATHYROID HORMONE
     Dosage: 133.3 MICROGRAM, QD
     Route: 065
     Dates: start: 20200324, end: 20201008
  38. PARATHYROID HORMONE [Suspect]
     Active Substance: PARATHYROID HORMONE
     Dosage: 133.3 MICROGRAM, QD
     Route: 065
     Dates: start: 20200324, end: 20201008
  39. PARATHYROID HORMONE [Suspect]
     Active Substance: PARATHYROID HORMONE
     Dosage: 133.3 MICROGRAM, QD
     Route: 065
     Dates: start: 20200324, end: 20201008
  40. PARATHYROID HORMONE [Suspect]
     Active Substance: PARATHYROID HORMONE
     Dosage: 122.1 MICROGRAM, QD
     Route: 065
     Dates: start: 20201009, end: 20210212
  41. PARATHYROID HORMONE [Suspect]
     Active Substance: PARATHYROID HORMONE
     Dosage: 122.1 MICROGRAM, QD
     Route: 065
     Dates: start: 20201009, end: 20210212
  42. PARATHYROID HORMONE [Suspect]
     Active Substance: PARATHYROID HORMONE
     Dosage: 122.1 MICROGRAM, QD
     Route: 065
     Dates: start: 20201009, end: 20210212
  43. PARATHYROID HORMONE [Suspect]
     Active Substance: PARATHYROID HORMONE
     Dosage: 111 MICROGRAM, QD
     Route: 065
     Dates: start: 20210213, end: 20210217
  44. PARATHYROID HORMONE [Suspect]
     Active Substance: PARATHYROID HORMONE
     Dosage: 111 MICROGRAM, QD
     Route: 065
     Dates: start: 20210213, end: 20210217
  45. PARATHYROID HORMONE [Suspect]
     Active Substance: PARATHYROID HORMONE
     Dosage: 111 MICROGRAM, QD
     Route: 065
     Dates: start: 20210213, end: 20210217
  46. PARATHYROID HORMONE [Suspect]
     Active Substance: PARATHYROID HORMONE
     Dosage: 133.3 MICROGRAM, QD
     Route: 065
     Dates: start: 20210218
  47. PARATHYROID HORMONE [Suspect]
     Active Substance: PARATHYROID HORMONE
     Dosage: 133.3 MICROGRAM, QD
     Route: 065
     Dates: start: 20210218
  48. PARATHYROID HORMONE [Suspect]
     Active Substance: PARATHYROID HORMONE
     Dosage: 133.3 MICROGRAM, QD
     Route: 065
     Dates: start: 20210218
  49. LEVOTHYROXINE SODIUM [Concomitant]
     Active Substance: LEVOTHYROXINE SODIUM
     Indication: Hypothyroidism
     Dosage: UNK
     Route: 048
     Dates: start: 20190624
  50. BISOPROLOL [Concomitant]
     Active Substance: BISOPROLOL
     Indication: Tachycardia
     Dosage: UNK
     Route: 048
     Dates: start: 20190624, end: 20191215
  51. BISOPROLOL [Concomitant]
     Active Substance: BISOPROLOL
     Dosage: UNK
     Route: 048
     Dates: start: 20190930
  52. LORAZEPAM [Concomitant]
     Active Substance: LORAZEPAM
     Indication: Hypocalcaemia
     Dosage: UNK
     Route: 048
     Dates: start: 20190624
  53. DESOGESTREL [Concomitant]
     Active Substance: DESOGESTREL
     Indication: Contraception
     Dosage: UNK
     Route: 048
     Dates: start: 20190624, end: 20190811
  54. DIGOXIN [Concomitant]
     Active Substance: DIGOXIN
     Indication: Tachycardia
     Dosage: UNK
     Route: 048
     Dates: start: 20191216, end: 20200206
  55. ARIXTRA [Concomitant]
     Active Substance: FONDAPARINUX SODIUM
     Indication: Superficial vein thrombosis
     Dosage: UNK
     Route: 058
     Dates: start: 20210903, end: 20210924
  56. SPIRONOLACTONE [Concomitant]
     Active Substance: SPIRONOLACTONE
     Indication: Diuretic therapy
     Dosage: UNK
     Route: 048
     Dates: start: 20210708, end: 20220721
  57. SPIRONOLACTONE [Concomitant]
     Active Substance: SPIRONOLACTONE
     Indication: Hypertension
  58. PANTOPRAZOLE SODIUM [Concomitant]
     Active Substance: PANTOPRAZOLE SODIUM
     Indication: Gastric ulcer
     Dosage: UNK
     Route: 048
     Dates: start: 20220624, end: 20220826
  59. TRAMADOL [Concomitant]
     Active Substance: TRAMADOL
     Indication: Pain
     Dosage: UNK
     Route: 048
     Dates: start: 20190624, end: 20221009
  60. TRAMADOL [Concomitant]
     Active Substance: TRAMADOL
     Dosage: UNK
     Route: 048
     Dates: start: 20221209
  61. METAMIZOL [Concomitant]
     Active Substance: METAMIZOLE SODIUM
     Indication: Pain
     Dosage: UNK
     Route: 048
     Dates: start: 20220721, end: 20220825
  62. TRIAMTERENE [Concomitant]
     Active Substance: TRIAMTERENE
     Indication: Tachycardia
     Dosage: UNK
     Route: 048
     Dates: start: 20201013, end: 20220720
  63. MEDYN [Concomitant]
     Indication: Vitamin B12
     Dosage: UNK
     Route: 048
     Dates: start: 20190624, end: 20220616
  64. MEDYN [Concomitant]
     Indication: Folate deficiency
  65. METAMIZOLE [Concomitant]
     Active Substance: METAMIZOLE
     Indication: Pain
     Dosage: UNK
     Route: 048
     Dates: start: 20221209
  66. MCP [Concomitant]
     Active Substance: METOCLOPRAMIDE HYDROCHLORIDE
     Indication: Nausea
     Dosage: UNK
     Route: 048
     Dates: start: 20191216, end: 20220616
  67. RASBURICASE [Concomitant]
     Active Substance: RASBURICASE
     Indication: Gout
     Dosage: UNK
     Route: 065
     Dates: start: 20220713, end: 20220713
  68. RASBURICASE [Concomitant]
     Active Substance: RASBURICASE
     Indication: Arthritis
  69. PREDNISOLONE [Concomitant]
     Active Substance: PREDNISOLONE
     Indication: Arthritis
     Dosage: UNK
     Route: 065
     Dates: start: 20220713, end: 20221213
  70. PREDNISOLONE [Concomitant]
     Active Substance: PREDNISOLONE
     Indication: Gout

REACTIONS (1)
  - Hip fracture [Recovering/Resolving]

NARRATIVE: CASE EVENT DATE: 20220801
